FAERS Safety Report 21377230 (Version 1)
Quarter: 2022Q3

REPORT INFORMATION
  Report Type: Spontaneous
  Country: US (occurrence: US)
  Receive Date: 20220926
  Receipt Date: 20220926
  Transmission Date: 20221027
  Serious: Yes (Hospitalization)
  Sender: FDA-Public Use
  Company Number: US-BEXIMCO-2022BEX00052

PATIENT
  Age: 25 Year
  Sex: Male

DRUGS (1)
  1. BACLOFEN [Suspect]
     Active Substance: BACLOFEN
     Dosage: 250 MG, ONCE [10 TABLETS]
     Route: 048

REACTIONS (6)
  - Intentional overdose [Recovered/Resolved]
  - Altered state of consciousness [Recovered/Resolved]
  - Foaming at mouth [Recovered/Resolved]
  - Urinary incontinence [Recovered/Resolved]
  - Metabolic alkalosis [Recovered/Resolved]
  - Aggression [Recovered/Resolved]
